FAERS Safety Report 6367345-X (Version None)
Quarter: 2009Q3

REPORT INFORMATION
  Report Type: 
  Country: None (occurrence: None)
  Receive Date: 20090915
  Receipt Date: 20090831
  Transmission Date: 20100115
  Serious: Yes (Other)
  Sender: FDA-Public Use
  Company Number: 8051291

PATIENT
  Age: 52 Year
  Sex: Female
  Weight: 113.8 kg

DRUGS (14)
  1. KEPPRA [Suspect]
     Indication: CONVULSION
     Dosage: 2000 MG 2/D PO
     Route: 048
     Dates: start: 20090803
  2. KEPPRA [Suspect]
     Dosage: 1500 MG 3/D PO
     Route: 048
     Dates: end: 20090803
  3. TOPAMAX [Concomitant]
  4. MIRAPEX [Concomitant]
  5. GENERIC LASIX [Concomitant]
  6. CLONAZEPAM [Concomitant]
  7. MULTI-VITAMIN [Concomitant]
  8. CALCIUM W/VITAMIN D [Concomitant]
  9. JANUVIA [Concomitant]
  10. ATENOLOL [Concomitant]
  11. COZAAR [Concomitant]
  12. TRIAMTERENE AND HYDROCHLOROTHIAZIDE [Concomitant]
  13. POTASSIUM ER [Concomitant]
  14. FAMCICLOVIR [Concomitant]

REACTIONS (6)
  - DIARRHOEA [None]
  - DIZZINESS [None]
  - LIMB SALVAGE THERAPY [None]
  - MALAISE [None]
  - NAUSEA [None]
  - OEDEMA PERIPHERAL [None]
